FAERS Safety Report 7983334-3 (Version None)
Quarter: 2011Q4

REPORT INFORMATION
  Report Type: 
  Country: None (occurrence: None)
  Receive Date: 20111215
  Receipt Date: 20111201
  Transmission Date: 20120403
  Serious: Yes (Hospitalization, Other)
  Sender: FDA-Public Use
  Company Number: NL-MEDIMMUNE-MEDI-0013864

PATIENT
  Sex: Male
  Weight: 9.92 kg

DRUGS (7)
  1. BACTRIM [Concomitant]
  2. BECLOMETHASONE DIPROPIONATE [Concomitant]
  3. SYNAGIS [Suspect]
     Indication: BRONCHOPULMONARY DYSPLASIA
     Route: 030
     Dates: start: 20110912, end: 20111006
  4. ALBUTEROL SULFATE AUTOHALER [Concomitant]
     Dates: end: 20110101
  5. SYNAGIS [Suspect]
     Route: 030
     Dates: start: 20111103, end: 20111103
  6. SYNAGIS [Suspect]
     Route: 030
     Dates: start: 20111201, end: 20111201
  7. MONTELUKAST SODIUM [Concomitant]
     Dates: end: 20110101

REACTIONS (5)
  - PAPULE [None]
  - HOSPITALISATION [None]
  - PULMONARY NECROSIS [None]
  - DYSPNOEA [None]
  - BODY TEMPERATURE INCREASED [None]
